FAERS Safety Report 19938580 (Version 1)
Quarter: 2021Q4

REPORT INFORMATION
  Report Type: Report from Study
  Country: PK (occurrence: PK)
  Receive Date: 20211011
  Receipt Date: 20211011
  Transmission Date: 20220303
  Serious: Yes (Hospitalization)
  Sender: FDA-Public Use
  Company Number: PK-NOVARTISPH-NVSC2021PK205864

PATIENT
  Sex: Male

DRUGS (5)
  1. SACUBITRIL\VALSARTAN [Suspect]
     Active Substance: SACUBITRIL\VALSARTAN
     Indication: Cardiac failure
     Dosage: 100 MG, BID (100MG TABLET, HALF TABLET IN THE MORNING AND HALF TABLET IN THE EVENING)
     Route: 048
     Dates: start: 20190122
  2. SPIROMIDE [Concomitant]
     Indication: Product used for unknown indication
     Dosage: UNK UNK, BID(0.5+0+0.5)
     Route: 065
  3. LASIX [Concomitant]
     Active Substance: FUROSEMIDE
     Indication: Product used for unknown indication
     Dosage: UNK UNK, QD(1+0+0+)
     Route: 065
  4. ROVISTA [Concomitant]
     Indication: Product used for unknown indication
     Dosage: UNK UNK, QD(1+0+0+)
     Route: 065
  5. TAMSULIN [Concomitant]
     Indication: Product used for unknown indication
     Dosage: UNK UNK, QD(0+0+1)
     Route: 065

REACTIONS (2)
  - Cardiac disorder [Unknown]
  - Wrong technique in product usage process [Not Recovered/Not Resolved]
